FAERS Safety Report 8497085 (Version 4)
Quarter: 2013Q4

REPORT INFORMATION
  Report Type: Spontaneous
  Country: US (occurrence: US)
  Receive Date: 20120406
  Receipt Date: 20131004
  Transmission Date: 20140711
  Serious: No
  Sender: FDA-Public Use
  Company Number: US-PFIZER INC-2012083139

PATIENT
  Age: 53 Year
  Sex: Female

DRUGS (4)
  1. EFFEXOR [Suspect]
     Dosage: 37.5 MG, 1X/DAY
  2. EFFEXOR XR [Suspect]
     Dosage: UNK
  3. LORAZEPAM [Concomitant]
     Dosage: 1 MG 1/2-1 TAB ONCE DAILY AS NEEDED
  4. LOVASTATIN [Concomitant]
     Dosage: 40 MG, 1X/DAY

REACTIONS (1)
  - Malaise [Unknown]
